FAERS Safety Report 20763641 (Version 2)
Quarter: 2022Q2

REPORT INFORMATION
  Report Type: Spontaneous
  Country: CZ (occurrence: None)
  Receive Date: 20220428
  Receipt Date: 20220523
  Transmission Date: 20220721
  Serious: Yes (Other)
  Sender: FDA-Public Use
  Company Number: CZ-ROCHE-3083360

PATIENT
  Age: 66 Year
  Sex: Female

DRUGS (5)
  1. PEGASYS [Suspect]
     Active Substance: PEGINTERFERON ALFA-2A
     Indication: Myeloproliferative neoplasm
     Dosage: LAST DOSE OF PEGINTERFERON ALFA-2A: 19/MAR/2022
     Route: 058
     Dates: start: 20220312
  2. ASPIRIN [Concomitant]
     Active Substance: ASPIRIN
     Indication: Thrombocytosis
  3. ASPIRIN [Concomitant]
     Active Substance: ASPIRIN
     Indication: Myeloproliferative neoplasm
  4. OMEPRAZOLE [Concomitant]
     Active Substance: OMEPRAZOLE
     Dates: start: 20100210
  5. THROMBOREDUCTIN [Concomitant]
     Indication: Myeloproliferative neoplasm

REACTIONS (6)
  - Myalgia [Recovering/Resolving]
  - Arthralgia [Recovering/Resolving]
  - Mental disorder [Recovering/Resolving]
  - Pyrexia [Recovering/Resolving]
  - Influenza like illness [Recovering/Resolving]
  - Off label use [Unknown]
